FAERS Safety Report 25664497 (Version 2)
Quarter: 2025Q4

REPORT INFORMATION
  Report Type: Spontaneous
  Country: US (occurrence: US)
  Receive Date: 20250811
  Receipt Date: 20251014
  Transmission Date: 20260119
  Serious: No
  Sender: ABBVIE
  Company Number: US-ABBVIE-6406653

PATIENT
  Sex: Female

DRUGS (2)
  1. REFRESH TEARS PF [Suspect]
     Active Substance: CARBOXYMETHYLCELLULOSE SODIUM\GLYCERIN
     Indication: Dry eye
     Route: 047
  2. REFRESH TEARS PF [Suspect]
     Active Substance: CARBOXYMETHYLCELLULOSE SODIUM\GLYCERIN
     Indication: Eye allergy

REACTIONS (9)
  - Eye disorder [Unknown]
  - Multiple allergies [Unknown]
  - Eye irritation [Recovered/Resolved]
  - Scar [Unknown]
  - Borderline glaucoma [Unknown]
  - Product odour abnormal [Unknown]
  - Ocular hyperaemia [Recovered/Resolved]
  - Incorrect product administration duration [Unknown]
  - Off label use [Unknown]
